FAERS Safety Report 9492032 (Version 2)
Quarter: 2013Q3

REPORT INFORMATION
  Report Type: Report from Study
  Country: ZA (occurrence: ZA)
  Receive Date: 20130830
  Receipt Date: 20130830
  Transmission Date: 20140515
  Serious: Yes (Death, Hospitalization)
  Sender: FDA-Public Use
  Company Number: ZA-ROCHE-1268291

PATIENT
  Age: 66 Year
  Sex: Female

DRUGS (5)
  1. RECORMON [Suspect]
     Indication: NEPHROGENIC ANAEMIA
     Route: 065
     Dates: start: 20100420
  2. RECORMON [Suspect]
     Route: 065
     Dates: start: 20110418
  3. RECORMON [Suspect]
     Route: 058
     Dates: start: 20120615, end: 20130805
  4. MIRCERA [Suspect]
     Indication: PRODUCT USED FOR UNKNOWN INDICATION
     Route: 065
     Dates: start: 20110928
  5. MIRCERA [Suspect]
     Route: 065
     Dates: start: 20120308

REACTIONS (1)
  - Local swelling [Fatal]
